FAERS Safety Report 8878742 (Version 1)
Quarter: 2012Q4

REPORT INFORMATION
  Report Type: 
  Country: US (occurrence: US)
  Receive Date: 20121026
  Receipt Date: 20121026
  Transmission Date: 20130627
  Serious: No
  Sender: FDA-Public Use
  Company Number: US-B.I. PHARMACEUTICALS,INC./RIDGEFIELD-2012-BP-26376BP

PATIENT
  Sex: Female
  Weight: 77 kg

DRUGS (9)
  1. MOBIC [Suspect]
     Indication: TENDONITIS
     Dosage: 15 mg
     Route: 048
  2. LEXAPRO [Concomitant]
     Indication: ANXIETY
     Route: 048
  3. WELLBUTRIN [Concomitant]
     Indication: ANXIETY
     Dosage: 50 mg
     Route: 048
  4. NEXIUM [Concomitant]
     Indication: GASTROOESOPHAGEAL REFLUX DISEASE
     Dosage: 40 mg
     Route: 048
  5. INDERAL [Concomitant]
     Indication: TREMOR
     Route: 048
  6. SYNTHROID [Concomitant]
     Indication: BASEDOW^S DISEASE
     Dosage: 125 mcg
     Route: 048
  7. ALLEGRA [Concomitant]
     Indication: SEASONAL ALLERGY
     Route: 048
  8. FLONASE [Concomitant]
     Indication: SEASONAL ALLERGY
     Route: 045
  9. TRAZODONE [Concomitant]
     Indication: SLEEP DISORDER
     Dosage: 50 mg
     Route: 048

REACTIONS (2)
  - Blood creatinine increased [Not Recovered/Not Resolved]
  - Vitamin D decreased [Not Recovered/Not Resolved]
